FAERS Safety Report 26130742 (Version 1)
Quarter: 2025Q4

REPORT INFORMATION
  Report Type: Spontaneous
  Country: EU (occurrence: EU)
  Receive Date: 20251208
  Receipt Date: 20251208
  Transmission Date: 20260117
  Serious: Yes (Other)
  Sender: COSETTE PHARMACEUTICALS INC
  Company Number: EU-DSJP-DS-2025-179093-IT

PATIENT
  Age: 78 Year
  Sex: Male

DRUGS (3)
  1. BENICAR [Suspect]
     Active Substance: OLMESARTAN MEDOXOMIL
     Indication: Hypertension
     Route: 065
  2. DENOSUMAB [Suspect]
     Active Substance: DENOSUMAB
     Indication: Metastases to bone
     Route: 058
     Dates: start: 202401
  3. CHOLECALCIFEROL [Concomitant]
     Active Substance: CHOLECALCIFEROL
     Indication: Vitamin supplementation
     Dosage: 1.000 UI/DAY
     Route: 065

REACTIONS (5)
  - Hypocalcaemia [Recovered/Resolved]
  - Hyperparathyroidism secondary [Unknown]
  - Paraesthesia [Recovered/Resolved]
  - Blood phosphorus decreased [Unknown]
  - Blood alkaline phosphatase increased [Unknown]
